FAERS Safety Report 7645894-1 (Version None)
Quarter: 2011Q3

REPORT INFORMATION
  Report Type: 
  Country: None (occurrence: None)
  Receive Date: 20110729
  Receipt Date: 20110721
  Transmission Date: 20111222
  Serious: Yes (Hospitalization)
  Sender: FDA-Public Use
  Company Number: US-BAYER-2011-066235

PATIENT
  Age: 33 Year
  Sex: Female
  Weight: 58.957 kg

DRUGS (3)
  1. FLONASE [Concomitant]
     Dosage: UNK
     Dates: start: 20080101
  2. YAZ [Suspect]
     Dosage: UNK
     Dates: start: 20090101, end: 20100201
  3. ZYRTEC [Concomitant]
     Dosage: UNK
     Dates: start: 20000101

REACTIONS (4)
  - GALLBLADDER DISORDER [None]
  - VOMITING [None]
  - PANCREATITIS [None]
  - NAUSEA [None]
